FAERS Safety Report 20544045 (Version 1)
Quarter: 2022Q1

REPORT INFORMATION
  Report Type: Spontaneous
  Country: CA (occurrence: None)
  Receive Date: 20220303
  Receipt Date: 20220303
  Transmission Date: 20220423
  Serious: Yes (Hospitalization)
  Sender: FDA-Public Use
  Company Number: CA-ROCHE-3036716

PATIENT
  Age: 78 Year
  Sex: Male
  Weight: 88 kg

DRUGS (15)
  1. ESBRIET [Suspect]
     Active Substance: PIRFENIDONE
     Indication: Idiopathic pulmonary fibrosis
     Route: 048
  2. RITUXIMAB [Suspect]
     Active Substance: RITUXIMAB
     Indication: Hodgkin^s disease
     Route: 065
  3. ACETAMINOPHEN [Concomitant]
     Active Substance: ACETAMINOPHEN
  4. ALLOPURINOL [Concomitant]
     Active Substance: ALLOPURINOL
  5. FERROUS FUMARATE [Concomitant]
     Active Substance: FERROUS FUMARATE
  6. FLUOROURACIL [Concomitant]
     Active Substance: FLUOROURACIL
  7. HYDROMORPHONE HYDROCHLORIDE [Concomitant]
     Active Substance: HYDROMORPHONE HYDROCHLORIDE
  8. IRBESARTAN [Concomitant]
     Active Substance: IRBESARTAN
  9. NYSTATIN [Concomitant]
     Active Substance: NYSTATIN
  10. ONDANSETRON [Concomitant]
     Active Substance: ONDANSETRON
  11. PANTOPRAZOLE [Concomitant]
     Active Substance: PANTOPRAZOLE
  12. PREDNISONE [Concomitant]
     Active Substance: PREDNISONE
     Route: 065
  13. RABEPRAZOLE [Concomitant]
     Active Substance: RABEPRAZOLE
  14. RIVAROXABAN [Concomitant]
     Active Substance: RIVAROXABAN
  15. SULFAMETHOXAZOLE\TRIMETHOPRIM [Concomitant]
     Active Substance: SULFAMETHOXAZOLE\TRIMETHOPRIM

REACTIONS (32)
  - Alanine aminotransferase increased [Recovered/Resolved]
  - Aortic aneurysm [Recovered/Resolved]
  - Appetite disorder [Recovered/Resolved]
  - Asthenia [Recovered/Resolved]
  - Atrial fibrillation [Recovered/Resolved]
  - Back pain [Recovered/Resolved]
  - Blood lactate dehydrogenase increased [Recovered/Resolved]
  - Computerised tomogram abnormal [Recovered/Resolved]
  - Diverticulum [Recovered/Resolved]
  - Diverticulum intestinal [Recovered/Resolved]
  - Dizziness [Recovered/Resolved]
  - Dyspnoea [Recovered/Resolved]
  - Fall [Recovered/Resolved]
  - Fatigue [Recovered/Resolved]
  - Gastrointestinal disorder [Recovered/Resolved]
  - Headache [Recovered/Resolved]
  - Hepatic steatosis [Recovered/Resolved]
  - Hypotension [Recovered/Resolved]
  - Interstitial lung disease [Recovered/Resolved]
  - Lethargy [Recovered/Resolved]
  - Lung consolidation [Recovered/Resolved]
  - Lymphadenopathy [Recovered/Resolved]
  - Lymphoma [Recovered/Resolved]
  - Nausea [Recovered/Resolved]
  - Neoplasm progression [Recovered/Resolved]
  - Orthostatic hypotension [Recovered/Resolved]
  - Pneumonitis [Recovered/Resolved]
  - Pulmonary artery dilatation [Recovered/Resolved]
  - Respiratory failure [Recovered/Resolved]
  - Second primary malignancy [Recovered/Resolved]
  - Squamous cell carcinoma of skin [Recovered/Resolved]
  - Weight decreased [Recovered/Resolved]
